FAERS Safety Report 10186122 (Version 1)
Quarter: 2014Q2

REPORT INFORMATION
  Report Type: Spontaneous
  Country: US (occurrence: US)
  Receive Date: 20140521
  Receipt Date: 20140521
  Transmission Date: 20141212
  Serious: Yes (Other)
  Sender: FDA-Public Use
  Company Number: US-PFIZER INC-2014136340

PATIENT
  Age: 67 Year
  Sex: Female
  Weight: 97.51 kg

DRUGS (8)
  1. PREMARIN [Suspect]
     Indication: HORMONE REPLACEMENT THERAPY
     Dosage: 0.625 MG, 1X/DAY
     Route: 048
  2. PRISTIQ [Suspect]
     Dosage: 100 MG, 1X/DAY
     Route: 048
  3. PRISTIQ [Suspect]
     Dosage: 50 MG, 1X/DAY
     Route: 048
  4. CELEBREX [Suspect]
     Dosage: 200 MG, 1X/DAY
     Route: 048
  5. PROZAC [Concomitant]
     Dosage: UNK
  6. PAMELOR [Concomitant]
     Dosage: UNK
  7. BABY ASPIRIN [Concomitant]
     Dosage: UNK
  8. ATENOLOL [Concomitant]
     Dosage: UNK

REACTIONS (5)
  - Spinal cord compression [Unknown]
  - Intervertebral disc compression [Unknown]
  - Intervertebral disc degeneration [Unknown]
  - Body height decreased [Unknown]
  - Memory impairment [Unknown]
